FAERS Safety Report 14364527 (Version 1)
Quarter: 2018Q1

REPORT INFORMATION
  Report Type: Report from Study
  Country: US (occurrence: US)
  Receive Date: 20180108
  Receipt Date: 20180108
  Transmission Date: 20180509
  Serious: No
  Sender: FDA-Public Use
  Company Number: US-ALEXION PHARMACEUTICALS INC.-A201714685

PATIENT
  Sex: Female
  Weight: 95.4 kg

DRUGS (1)
  1. SOLIRIS [Suspect]
     Active Substance: ECULIZUMAB
     Indication: ATYPICAL HAEMOLYTIC URAEMIC SYNDROME
     Dosage: UNK, QMONTH
     Route: 065
     Dates: start: 20160520

REACTIONS (6)
  - Medication error [Unknown]
  - Blood glucose increased [Unknown]
  - Confusional state [Unknown]
  - Oedema [Unknown]
  - Mean cell volume decreased [Unknown]
  - Hypertension [Unknown]

NARRATIVE: CASE EVENT DATE: 20171109
